FAERS Safety Report 9239299 (Version 2)
Quarter: 2013Q2

REPORT INFORMATION
  Report Type: Report from Study
  Country: PE (occurrence: PE)
  Receive Date: 20130418
  Receipt Date: 20130423
  Transmission Date: 20140414
  Serious: Yes (Death)
  Sender: FDA-Public Use
  Company Number: PE-ROCHE-1215712

PATIENT
  Sex: Male

DRUGS (3)
  1. AVASTIN [Suspect]
     Indication: COLON CANCER
     Route: 042
     Dates: start: 20120207, end: 20120207
  2. AVASTIN [Suspect]
     Route: 042
     Dates: start: 201209
  3. AVASTIN [Suspect]
     Route: 042
     Dates: start: 201212

REACTIONS (1)
  - Death [Fatal]
